FAERS Safety Report 19218535 (Version 1)
Quarter: 2021Q2

REPORT INFORMATION
  Report Type: Spontaneous
  Country: US (occurrence: US)
  Receive Date: 20210505
  Receipt Date: 20210505
  Transmission Date: 20210717
  Serious: Yes (Hospitalization)
  Sender: FDA-Public Use
  Company Number: US-BIO PRODUCTS LABORATORY LTD-2110232

PATIENT
  Age: 74 Year
  Sex: Male

DRUGS (5)
  1. DEXAMETHASONE. [Concomitant]
     Active Substance: DEXAMETHASONE
  2. HUMAN NORMAL IMMUNOGLOBULIN [Suspect]
     Active Substance: HUMAN IMMUNOGLOBULIN G
     Indication: IMMUNE THROMBOCYTOPENIA
     Route: 042
  3. MODERNA COVID?19 VACCINE [Suspect]
     Active Substance: CX-024414
     Dates: start: 20210119
  4. RITUXIMAB (375MG/M^2/DOSE) [TWO WEEKLY DOSES] [Concomitant]
  5. THREE DAILY PLATELET TRANSFUSIONS [Concomitant]

REACTIONS (7)
  - Muscular weakness [Unknown]
  - Urinary retention [Unknown]
  - Constipation [Unknown]
  - Back pain [Unknown]
  - Encephalopathy [Unknown]
  - Off label use [Unknown]
  - Drug ineffective for unapproved indication [Unknown]
